FAERS Safety Report 17777245 (Version 1)
Quarter: 2020Q2

REPORT INFORMATION
  Report Type: Spontaneous
  Country: US (occurrence: US)
  Receive Date: 20200513
  Receipt Date: 20200513
  Transmission Date: 20200714
  Serious: No
  Sender: FDA-Public Use
  Company Number: US-AMNEAL PHARMACEUTICALS-2020-AMRX-00579

PATIENT
  Sex: Female

DRUGS (1)
  1. ELURYNG [Suspect]
     Active Substance: ETHINYL ESTRADIOL\ETONOGESTREL
     Indication: PRODUCT USED FOR UNKNOWN INDICATION
     Dosage: 1 DOSAGE FORM, EVERY 3 WEEKS (ONCE EVERY 21 DAYS)
     Route: 065
     Dates: start: 20200123

REACTIONS (1)
  - Menstruation irregular [Unknown]

NARRATIVE: CASE EVENT DATE: 20200209
